FAERS Safety Report 17439184 (Version 9)
Quarter: 2020Q2

REPORT INFORMATION
  Report Type: Spontaneous
  Country: US (occurrence: US)
  Receive Date: 20200220
  Receipt Date: 20200616
  Transmission Date: 20200713
  Serious: No
  Sender: FDA-Public Use
  Company Number: US-GLAXOSMITHKLINE-US2020AMR024195

PATIENT
  Sex: Female

DRUGS (6)
  1. ZEJULA [Suspect]
     Active Substance: NIRAPARIB
     Dosage: 300 MG, QD (1 CAPSULE DAILY)
  2. ZEJULA [Suspect]
     Active Substance: NIRAPARIB
     Dosage: 300 MG, QD
     Dates: start: 20200601
  3. ZEJULA [Suspect]
     Active Substance: NIRAPARIB
     Dosage: 300 MG, ONCE DAILY
     Dates: start: 20200130
  4. ZEJULA [Suspect]
     Active Substance: NIRAPARIB
     Dosage: 300 MG, QD (2 CAPS PER DAY AS PER DOCTOR ORDER)
  5. ZEJULA [Suspect]
     Active Substance: NIRAPARIB
     Indication: FALLOPIAN TUBE CANCER
     Dosage: 1 DF (CAPSULE), QD
     Dates: start: 20200130
  6. ZEJULA [Suspect]
     Active Substance: NIRAPARIB
     Dosage: 2 DF (CAPSULE), QD
     Dates: start: 20200201, end: 20200217

REACTIONS (9)
  - Ocular hyperaemia [Unknown]
  - Weight decreased [Unknown]
  - Platelet count decreased [Recovering/Resolving]
  - Headache [Unknown]
  - Haemoglobin decreased [Not Recovered/Not Resolved]
  - Ocular discomfort [Unknown]
  - Inappropriate schedule of product administration [Unknown]
  - Nausea [Unknown]
  - Blood iron decreased [Not Recovered/Not Resolved]
